FAERS Safety Report 4936770-3 (Version None)
Quarter: 2006Q1

REPORT INFORMATION
  Report Type: 
  Country: None (occurrence: None)
  Receive Date: 20060307
  Receipt Date: 20060209
  Transmission Date: 20060701
  Serious: Yes (Hospitalization, Other)
  Sender: FDA-Public Use
  Company Number: US-MERCK-0602USA03613

PATIENT
  Age: 66 Year
  Sex: Female
  Weight: 102 kg

DRUGS (12)
  1. VIOXX [Suspect]
     Indication: CARPAL TUNNEL SYNDROME
     Route: 048
     Dates: start: 19990101, end: 20040601
  2. VIOXX [Suspect]
     Route: 048
     Dates: start: 19990101, end: 20040601
  3. GLUCOPHAGE [Concomitant]
     Route: 048
  4. DILTIAZEM HYDROCHLORIDE [Concomitant]
     Route: 048
  5. MICRO-K [Concomitant]
     Route: 048
  6. LANOXIN [Concomitant]
     Route: 048
  7. SYNTHROID [Concomitant]
     Route: 048
  8. LASIX [Concomitant]
     Route: 048
  9. ATACAND [Concomitant]
     Route: 048
  10. NITROGLYCERIN [Concomitant]
     Route: 048
  11. ECOTRIN [Concomitant]
     Route: 065
  12. LIMBITROL TABLETS [Concomitant]
     Route: 065

REACTIONS (25)
  - ANAEMIA [None]
  - BRADYCARDIA [None]
  - CARDIAC DISORDER [None]
  - CARDIAC FAILURE CONGESTIVE [None]
  - CARPAL TUNNEL SYNDROME [None]
  - CEREBRAL INFARCTION [None]
  - CEREBROVASCULAR ACCIDENT [None]
  - CHEST PAIN [None]
  - CHRONIC OBSTRUCTIVE PULMONARY DISEASE [None]
  - COORDINATION ABNORMAL [None]
  - DELIRIUM [None]
  - DYSPNOEA [None]
  - HAEMATOCHEZIA [None]
  - HYPERKALAEMIA [None]
  - HYPOTENSION [None]
  - LOBAR PNEUMONIA [None]
  - MIGRAINE [None]
  - MYOCARDIAL INFARCTION [None]
  - OEDEMA PERIPHERAL [None]
  - RENAL DISORDER [None]
  - RENAL FAILURE ACUTE [None]
  - RESPIRATORY DISTRESS [None]
  - SLEEP APNOEA SYNDROME [None]
  - THERAPEUTIC AGENT TOXICITY [None]
  - THYROID DISORDER [None]
